FAERS Safety Report 18311226 (Version 1)
Quarter: 2020Q3

REPORT INFORMATION
  Report Type: Spontaneous
  Country: CN (occurrence: CN)
  Receive Date: 20200925
  Receipt Date: 20200925
  Transmission Date: 20201103
  Serious: Yes (Hospitalization)
  Sender: FDA-Public Use
  Company Number: CN-ELI_LILLY_AND_COMPANY-CN202009007064

PATIENT
  Age: 77 Year
  Sex: Male
  Weight: 60 kg

DRUGS (6)
  1. HUMULIN R [Suspect]
     Active Substance: INSULIN HUMAN
     Dosage: 6 U, DAILY, MIDDAY
     Route: 058
     Dates: start: 20200821
  2. MECOBALAMIN [Concomitant]
     Active Substance: METHYLCOBALAMIN
     Indication: PRODUCT USED FOR UNKNOWN INDICATION
     Dosage: UNK
     Route: 048
     Dates: start: 20200901
  3. HUMULIN 70/30 [Suspect]
     Active Substance: INSULIN HUMAN
     Indication: DIABETES MELLITUS
     Dosage: 8 U, EACH MORNING
     Route: 058
     Dates: end: 20200829
  4. HUMULIN 70/30 [Suspect]
     Active Substance: INSULIN HUMAN
     Dosage: 7 U, EACH EVENING
     Route: 058
     Dates: end: 20200829
  5. HUMULIN R [Suspect]
     Active Substance: INSULIN HUMAN
     Indication: DIABETES MELLITUS
     Dosage: 5 U, EACH MORNING
     Route: 058
     Dates: start: 20200821
  6. HUMULIN R [Suspect]
     Active Substance: INSULIN HUMAN
     Dosage: 7 U, EACH EVENING
     Route: 058
     Dates: start: 20200821

REACTIONS (2)
  - Blood glucose increased [Not Recovered/Not Resolved]
  - Cataract [Unknown]
